FAERS Safety Report 11830396 (Version 3)
Quarter: 2015Q4

REPORT INFORMATION
  Report Type: Spontaneous
  Country: US (occurrence: US)
  Receive Date: 20151214
  Receipt Date: 20151214
  Transmission Date: 20160305
  Serious: Yes (Disabling, Other)
  Sender: FDA-Public Use
  Company Number: US-JNJFOC-20151112630

PATIENT
  Sex: Female

DRUGS (2)
  1. AVALOX [Suspect]
     Active Substance: MOXIFLOXACIN HYDROCHLORIDE
     Indication: SINUSITIS
     Route: 048
     Dates: start: 20080125, end: 20080130
  2. LEVAQUIN [Suspect]
     Active Substance: LEVOFLOXACIN
     Indication: SINUSITIS
     Route: 048
     Dates: start: 20060412, end: 20060418

REACTIONS (4)
  - Injury [Unknown]
  - Emotional disorder [Unknown]
  - Neuropathy peripheral [Unknown]
  - Tendonitis [Unknown]
